FAERS Safety Report 12696910 (Version 2)
Quarter: 2017Q3

REPORT INFORMATION
  Report Type: Other
  Country: CA (occurrence: CA)
  Receive Date: 20160830
  Receipt Date: 20170902
  Transmission Date: 20171127
  Serious: Yes (Hospitalization, Other)
  Sender: FDA-Public Use
  Company Number: CA-APOTEX-2016AP010675

PATIENT
  Age: 54 Year
  Sex: Female

DRUGS (12)
  1. APO-CLONAZEPAM [Suspect]
     Active Substance: CLONAZEPAM
     Indication: DEPRESSION
     Dosage: 0.5 MG, TID
     Route: 048
  2. APO-ESCITALOPRAM [Suspect]
     Active Substance: ESCITALOPRAM OXALATE
     Indication: DEPRESSION
     Dosage: 20 MG, UNK
     Route: 048
  3. APC-FERROUS SULFATE [Suspect]
     Active Substance: FERROUS SULFATE
     Indication: ANAEMIA
     Dosage: 300 MG, TID
     Route: 048
  4. APO-TEMAZEPAM [Suspect]
     Active Substance: TEMAZEPAM
     Indication: INSOMNIA
     Dosage: 30 MG, QD
     Route: 048
  5. CIPRALEX [Suspect]
     Active Substance: ESCITALOPRAM OXALATE
     Indication: PRODUCT USED FOR UNKNOWN INDICATION
     Route: 048
  6. GABAPENTIN. [Suspect]
     Active Substance: GABAPENTIN
     Dosage: 600 MG, BID
     Route: 048
  7. MULTIVITAMINS W/MINERALS [Suspect]
     Active Substance: MINERALS\VITAMINS
     Indication: MACULAR DEGENERATION
     Dosage: 2 DF, QD
     Route: 048
  8. ACETAMINOPHEN W/CODEINE PHOSPHATE [Suspect]
     Active Substance: ACETAMINOPHEN\CODEINE PHOSPHATE
     Indication: BACK PAIN
     Dosage: 2 DF, TID
     Route: 048
  9. DOMPERIDONE MALEATE TABLETS [Suspect]
     Active Substance: DOMPERIDONE MALEATE
     Indication: IRRITABLE BOWEL SYNDROME
     Dosage: 10 MG, BID
     Route: 048
  10. GABAPENTIN. [Suspect]
     Active Substance: GABAPENTIN
     Indication: FIBROMYALGIA
     Dosage: 300 MG, QD
     Route: 048
  11. WELLBUTRIN [Suspect]
     Active Substance: BUPROPION HYDROCHLORIDE
     Indication: DEPRESSION
     Dosage: 150 MG, BID
     Route: 048
  12. TYLENOL WITH CODEINE [Suspect]
     Active Substance: ACETAMINOPHEN\CODEINE PHOSPHATE
     Indication: PRODUCT USED FOR UNKNOWN INDICATION
     Dosage: UNK, TID
     Route: 048

REACTIONS (4)
  - Dehydration [Recovering/Resolving]
  - Dysphagia [Recovering/Resolving]
  - Condition aggravated [Recovering/Resolving]
  - Mental disorder [Recovering/Resolving]
